FAERS Safety Report 8589408-0 (Version None)
Quarter: 2012Q3

REPORT INFORMATION
  Report Type: 
  Country: None (occurrence: None)
  Receive Date: 20120813
  Receipt Date: 20120716
  Transmission Date: 20120928
  Serious: Yes (Other)
  Sender: FDA-Public Use
  Company Number: DK-PFIZER INC-2012170391

PATIENT
  Age: 64 Year

DRUGS (3)
  1. ARMODAFINIL [Suspect]
     Indication: NAIL INFECTION
     Dosage: UNK
     Dates: start: 20120712
  2. NIFEDIPINE [Concomitant]
     Dosage: UNK
  3. ENALAPRIL [Concomitant]
     Dosage: UNK

REACTIONS (1)
  - HALLUCINATION [None]
